FAERS Safety Report 4850479-6 (Version None)
Quarter: 2005Q4

REPORT INFORMATION
  Report Type: 
  Country: None (occurrence: None)
  Receive Date: 20051123
  Receipt Date: 20050927
  Transmission Date: 20060501
  Serious: No
  Sender: FDA-Public Use
  Company Number: 218100

PATIENT
  Age: 59 Year
  Sex: Male
  Weight: 83.9 kg

DRUGS (2)
  1. RAPTIVA [Suspect]
     Dosage: 90 MG, 1/WEEK, SUBCUTANEOUS
     Route: 058
     Dates: start: 20050701, end: 20050901
  2. ALLOPURINOL [Concomitant]

REACTIONS (1)
  - ARTHRALGIA [None]
